FAERS Safety Report 20877220 (Version 1)
Quarter: 2022Q2

REPORT INFORMATION
  Report Type: Report from Study
  Country: US (occurrence: US)
  Receive Date: 20220526
  Receipt Date: 20220526
  Transmission Date: 20220721
  Serious: Yes (Other)
  Sender: FDA-Public Use
  Company Number: US-MYLANLABS-2022M1038759

PATIENT

DRUGS (2)
  1. CISPLATIN [Suspect]
     Active Substance: CISPLATIN
     Indication: Neoplasm
     Dosage: UNK, INFUSION
  2. BERZOSERTIB [Concomitant]
     Active Substance: BERZOSERTIB
     Indication: Neoplasm
     Dosage: UNK, DAY 2 AND 9, INTRAVENOUS INFUSION
     Route: 042

REACTIONS (3)
  - Hypotension [Unknown]
  - Hypoxia [Unknown]
  - Infusion related reaction [Unknown]
